FAERS Safety Report 14558781 (Version 3)
Quarter: 2018Q2

REPORT INFORMATION
  Report Type: Spontaneous
  Country: JP (occurrence: JP)
  Receive Date: 20180221
  Receipt Date: 20180423
  Transmission Date: 20180711
  Serious: Yes (Hospitalization, Other)
  Sender: FDA-Public Use
  Company Number: JP-009507513-1704JPN002307J

PATIENT
  Age: 69 Year
  Sex: Male
  Weight: 60 kg

DRUGS (12)
  1. KEYTRUDA [Suspect]
     Active Substance: PEMBROLIZUMAB
     Indication: LUNG ADENOCARCINOMA
     Dosage: 200 MG, Q3W
     Route: 041
     Dates: start: 20170327, end: 20170327
  2. BENIDIPINE HYDROCHLORIDE [Concomitant]
     Active Substance: BENIDIPINE HYDROCHLORIDE
     Dosage: 8.0 MG, QD
     Route: 048
  3. OLMETEC [Concomitant]
     Active Substance: OLMESARTAN MEDOXOMIL
     Dosage: 10.0 MG, QD
     Route: 048
  4. METGLUCO [Concomitant]
     Active Substance: METFORMIN HYDROCHLORIDE
     Dosage: 250.0 MG, UNK
     Route: 048
  5. PRANLUKAST [Concomitant]
     Active Substance: PRANLUKAST
     Dosage: 225.0 MG, BID
     Route: 048
     Dates: start: 20170417, end: 20170515
  6. KEYTRUDA [Suspect]
     Active Substance: PEMBROLIZUMAB
     Dosage: 200 MG, Q3W
     Route: 041
     Dates: start: 20170515, end: 20170904
  7. MAO-BUSHI-SAISHIN-TO [Concomitant]
     Active Substance: HERBALS
     Dosage: 1.0 DF, UNK
     Route: 048
     Dates: start: 20170417, end: 20170515
  8. FAMOTIDINE OD [Concomitant]
     Active Substance: FAMOTIDINE
     Indication: PROPHYLAXIS
     Dosage: 20.0 MG, UNK
     Route: 048
  9. MUCOSAL [Concomitant]
     Dosage: 15.0 MG, TID
     Route: 048
  10. LOXOPROFEN [Concomitant]
     Active Substance: LOXOPROFEN
     Dosage: 60.0 MG, UNK
     Route: 048
  11. ALLELOCK [Concomitant]
     Active Substance: OLOPATADINE HYDROCHLORIDE
     Dosage: 5.0 MG, BID
     Route: 048
     Dates: start: 20170417, end: 20170515
  12. NASONEX [Concomitant]
     Active Substance: MOMETASONE FUROATE
     Dosage: 1.0 DF, UNK
     Route: 045
     Dates: start: 20170417, end: 20170515

REACTIONS (3)
  - Malignant neoplasm progression [Not Recovered/Not Resolved]
  - Insomnia [Recovered/Resolved]
  - Lymphangiosis carcinomatosa [Recovered/Resolved]

NARRATIVE: CASE EVENT DATE: 20170417
